FAERS Safety Report 7402694-5 (Version None)
Quarter: 2011Q1

REPORT INFORMATION
  Report Type: 
  Country: None (occurrence: None)
  Receive Date: 20110329
  Receipt Date: 20110310
  Transmission Date: 20110831
  Serious: Yes (Hospitalization)
  Sender: FDA-Public Use
  Company Number: JPI-P-014173

PATIENT
  Age: 37 Year
  Sex: Male
  Weight: 74.8435 kg

DRUGS (14)
  1. VERAPAMIL [Concomitant]
  2. VITAMIN D [Concomitant]
  3. METHYLPHENIDATE [Concomitant]
  4. ATENOLOL [Concomitant]
  5. BROMPHENIRAMINE MALEATE AND PSEUDOEPHEDRINE HCL [Concomitant]
  6. SIMVASTATIN [Concomitant]
  7. VALSARTANAND HYDROCHLOROTHIAZIDE [Concomitant]
  8. VENLAFAXINE HCL [Concomitant]
  9. CALCIUM [Concomitant]
  10. PROBIOTIC [Concomitant]
  11. XYREM [Suspect]
     Indication: CATAPLEXY
     Dosage: 4.5 GM (2.24 GM,2 IN 1 D),ORAL
     Route: 048
     Dates: start: 20110222, end: 20110306
  12. PANTOPRAZOLE [Concomitant]
  13. MULTI-VITAMINS [Concomitant]
  14. MONTELUKAST SODIUM [Concomitant]

REACTIONS (3)
  - WHITE BLOOD CELL COUNT INCREASED [None]
  - POST LUMBAR PUNCTURE SYNDROME [None]
  - BACK PAIN [None]
